FAERS Safety Report 8246280-6 (Version None)
Quarter: 2012Q1

REPORT INFORMATION
  Report Type: 
  Country: None (occurrence: None)
  Receive Date: 20120329
  Receipt Date: 20120329
  Transmission Date: 20120608
  Serious: Yes (Death)
  Sender: FDA-Public Use
  Company Number: None

PATIENT
  Age: 80 Year
  Sex: Female

DRUGS (8)
  1. ALENDRONATE SODIUM [Concomitant]
  2. TRAZODONE HCL [Concomitant]
  3. REVLIMID [Suspect]
     Indication: MYELODYSPLASTIC SYNDROME
     Dosage: 10 MG DAILY PO
     Route: 048
     Dates: start: 20090601, end: 20111201
  4. CITALOPRAM HYDROBROMIDE [Concomitant]
  5. CALCIUM/VITAMIN D [Concomitant]
  6. ASPIRIN [Concomitant]
  7. FILGRASTIM [Concomitant]
  8. ATENOLOL [Concomitant]

REACTIONS (6)
  - PNEUMONIA [None]
  - PLATELET COUNT DECREASED [None]
  - ASTHENIA [None]
  - DYSPNOEA [None]
  - RESPIRATORY DISTRESS [None]
  - PULMONARY HAEMORRHAGE [None]
